FAERS Safety Report 4715139-0 (Version None)
Quarter: 2005Q3

REPORT INFORMATION
  Report Type: 
  Country: None (occurrence: None)
  Receive Date: 20050715
  Receipt Date: 20050713
  Transmission Date: 20060218
  Serious: Yes (Hospitalization, Other)
  Sender: FDA-Public Use
  Company Number: US-GLAXOSMITHKLINE-A0566109A

PATIENT
  Age: 25 Year
  Sex: Male

DRUGS (7)
  1. LAMICTAL [Suspect]
     Indication: BIPOLAR DISORDER
     Route: 048
     Dates: start: 20050325
  2. ULTRAM [Concomitant]
  3. AMBIEN [Concomitant]
  4. ASTELIN [Concomitant]
  5. FLONASE [Concomitant]
  6. RELPAX [Concomitant]
  7. EPIPEN [Concomitant]

REACTIONS (3)
  - DIARRHOEA [None]
  - NAUSEA [None]
  - WEIGHT DECREASED [None]
